FAERS Safety Report 9198735 (Version 2)
Quarter: 2013Q2

REPORT INFORMATION
  Report Type: Spontaneous
  Country: CH (occurrence: CH)
  Receive Date: 20130329
  Receipt Date: 20130402
  Transmission Date: 20140414
  Serious: Yes (Other)
  Sender: FDA-Public Use
  Company Number: CH-PFIZER INC-2013099990

PATIENT
  Age: 75 Year
  Sex: Male
  Weight: 83 kg

DRUGS (8)
  1. ATORVASTATIN PFIZER [Suspect]
     Indication: PROPHYLAXIS
     Dosage: 20 MG, 1X/DAY
     Route: 048
  2. XARELTO [Interacting]
     Indication: ATRIAL FIBRILLATION
     Dosage: 10 MG, 1X/DAY
     Route: 048
     Dates: start: 20130116, end: 20130124
  3. XARELTO [Interacting]
     Indication: ATRIAL FLUTTER
     Dosage: 15 MG, 1X/DAY
     Route: 048
     Dates: start: 20130125, end: 20130306
  4. ESCODARON [Interacting]
     Indication: ATRIAL FIBRILLATION
     Dosage: 100 MG, 1X/DAY
     Route: 048
  5. ESCODARON [Interacting]
     Indication: ATRIAL FLUTTER
  6. GALVUMET [Concomitant]
     Dosage: 50/1000 UNK, 2X/DAY
  7. METO ZEROK [Concomitant]
     Dosage: 50 MG, 1X/DAY
  8. LISITRIL [Concomitant]
     Dosage: 10 MG, 1X/DAY

REACTIONS (3)
  - Haemorrhage urinary tract [Recovered/Resolved]
  - Drug interaction [Recovered/Resolved]
  - Epistaxis [Recovered/Resolved]
